FAERS Safety Report 4960681-0 (Version None)
Quarter: 2006Q2

REPORT INFORMATION
  Report Type: 
  Country: None (occurrence: None)
  Receive Date: 20060403
  Receipt Date: 20051107
  Transmission Date: 20061013
  Serious: Yes (Hospitalization)
  Sender: FDA-Public Use
  Company Number: US-MERCK-0511USA01174

PATIENT
  Age: 58 Year
  Sex: Female
  Weight: 54 kg

DRUGS (1)
  1. VIOXX [Suspect]
     Indication: RHEUMATOID ARTHRITIS
     Route: 048
     Dates: start: 19990101, end: 20040930

REACTIONS (16)
  - ANXIETY [None]
  - ARACHNOID CYST [None]
  - BLOOD HOMOCYSTEINE INCREASED [None]
  - CAROTID ARTERY STENOSIS [None]
  - CEREBROVASCULAR ACCIDENT [None]
  - COORDINATION ABNORMAL [None]
  - CYST [None]
  - GASTROINTESTINAL DISORDER [None]
  - HALLUCINATION [None]
  - HEADACHE [None]
  - HEARING IMPAIRED [None]
  - HYPOTENSION [None]
  - INSOMNIA [None]
  - MENTAL STATUS CHANGES [None]
  - PERSONALITY CHANGE [None]
  - UPPER RESPIRATORY TRACT INFECTION [None]
